FAERS Safety Report 10625404 (Version 1)
Quarter: 2014Q4

REPORT INFORMATION
  Report Type: Spontaneous
  Country: PT (occurrence: None)
  Receive Date: 20141202
  Receipt Date: 20141202
  Transmission Date: 20150529
  Serious: Yes (Life-Threatening, Other)
  Sender: FDA-Public Use
  Company Number: 2014AMD00127

PATIENT
  Age: 48 Year
  Sex: Female

DRUGS (1)
  1. EPINEPHRINE (EPINEPHRINE) INTRAVENOUS [Suspect]
     Active Substance: EPINEPHRINE HYDROCHLORIDE
     Route: 042

REACTIONS (6)
  - Wrong drug administered [None]
  - Product packaging confusion [None]
  - Tachycardia [None]
  - Mydriasis [None]
  - Cardiac arrest [None]
  - Hypertension [None]
